FAERS Safety Report 9399824 (Version 2)
Quarter: 2013Q3

REPORT INFORMATION
  Report Type: Report from Study
  Country: AU (occurrence: AU)
  Receive Date: 20130715
  Receipt Date: 20130719
  Transmission Date: 20140515
  Serious: Yes (Other)
  Sender: FDA-Public Use
  Company Number: PHHY2013AU074493

PATIENT
  Age: 37 Year
  Sex: Male

DRUGS (1)
  1. CLOZARIL [Suspect]
     Dosage: 175 MG MAX
     Dates: start: 20130619, end: 20130707

REACTIONS (5)
  - Dyspnoea [Recovered/Resolved]
  - Myocarditis [Unknown]
  - Troponin increased [Unknown]
  - Confusional state [Unknown]
  - Neutrophil count increased [Unknown]
